FAERS Safety Report 8139531-X (Version None)
Quarter: 2012Q1

REPORT INFORMATION
  Report Type: 
  Country: None (occurrence: None)
  Receive Date: 20120215
  Receipt Date: 20120208
  Transmission Date: 20120608
  Serious: Yes (Other)
  Sender: FDA-Public Use
  Company Number: US-GILEAD-2012-0050371

PATIENT
  Age: 40 Year
  Sex: Female

DRUGS (2)
  1. MEDROXYPROGESTERONE [Concomitant]
     Indication: CONTRACEPTION
  2. EMTRICITABINE/TENOFOVIR DISOPROXIL FUMARATE [Suspect]
     Indication: PROPHYLAXIS AGAINST HIV INFECTION
     Dosage: UNK
     Dates: start: 20090327

REACTIONS (1)
  - ABORTION SPONTANEOUS [None]
